FAERS Safety Report 11155457 (Version 3)
Quarter: 2016Q1

REPORT INFORMATION
  Report Type: Report from Study
  Country: JP (occurrence: JP)
  Receive Date: 20150602
  Receipt Date: 20160210
  Transmission Date: 20160525
  Serious: Yes (Hospitalization)
  Sender: FDA-Public Use
  Company Number: JP-SA-2015SA072772

PATIENT
  Age: 73 Year
  Sex: Male
  Weight: 73 kg

DRUGS (5)
  1. JEVTANA [Suspect]
     Active Substance: CABAZITAXEL
     Indication: PROSTATE CANCER
     Route: 042
     Dates: start: 20141224, end: 20141224
  2. DECADRON [Concomitant]
     Active Substance: DEXAMETHASONE
     Indication: PREMEDICATION
     Route: 042
     Dates: start: 20141224, end: 20141224
  3. CHLOR-TRIMETON [Concomitant]
     Active Substance: CHLORPHENIRAMINE MALEATE
     Indication: PREMEDICATION
     Route: 042
     Dates: start: 20141224, end: 20141224
  4. GASTER [Concomitant]
     Active Substance: FAMOTIDINE
     Indication: PREMEDICATION
     Route: 042
     Dates: start: 20141224, end: 20141224
  5. JEVTANA [Suspect]
     Active Substance: CABAZITAXEL
     Indication: PROSTATE CANCER
     Route: 065
     Dates: start: 20141201, end: 20141201

REACTIONS (4)
  - Neutropenia [Recovered/Resolved]
  - Dyspnoea exertional [Unknown]
  - Pneumonitis [Recovering/Resolving]
  - Oxygen saturation decreased [Recovered/Resolved]

NARRATIVE: CASE EVENT DATE: 20141230
